FAERS Safety Report 7690292-8 (Version None)
Quarter: 2011Q3

REPORT INFORMATION
  Report Type: 
  Country: None (occurrence: None)
  Receive Date: 20110818
  Receipt Date: 20110815
  Transmission Date: 20111222
  Serious: Yes (Death, Hospitalization, Other)
  Sender: FDA-Public Use
  Company Number: US-ELI_LILLY_AND_COMPANY-US200910005607

PATIENT
  Sex: Female

DRUGS (2)
  1. BYETTA [Suspect]
     Dosage: UNK, UNKNOWN
     Route: 065
     Dates: start: 20070401, end: 20080301
  2. TYLENOL (CAPLET) [Concomitant]
     Dosage: UNK, UNKNOWN

REACTIONS (2)
  - PANCREATITIS ACUTE [None]
  - PANCREATIC CARCINOMA [None]
